FAERS Safety Report 5996266-7 (Version None)
Quarter: 2008Q4

REPORT INFORMATION
  Report Type: 
  Country: None (occurrence: None)
  Receive Date: 20081212
  Receipt Date: 20081014
  Transmission Date: 20090506
  Serious: No
  Sender: FDA-Public Use
  Company Number: US-ABBOTT-08P-163-0481669-00

PATIENT
  Sex: Male
  Weight: 86.26 kg

DRUGS (10)
  1. HUMIRA [Suspect]
     Indication: CROHN'S DISEASE
     Dosage: LOADING DOSE
     Route: 058
     Dates: start: 20080811, end: 20080811
  2. HUMIRA [Suspect]
     Dosage: LOADING DOSE
     Route: 058
     Dates: start: 20080909, end: 20080909
  3. HUMIRA [Suspect]
     Dosage: 2 SHOTS
     Route: 058
     Dates: start: 20080923, end: 20080923
  4. HUMIRA [Suspect]
     Dosage: 2 SHOTS
     Route: 058
     Dates: start: 20081007
  5. AZATHIOPRINE [Concomitant]
     Indication: DRUG USE FOR UNKNOWN INDICATION
     Dosage: 3 PILLS
     Route: 048
  6. MESALAMINE [Concomitant]
     Indication: DRUG USE FOR UNKNOWN INDICATION
     Route: 048
  7. PREDNISONE TAB [Concomitant]
     Indication: DRUG USE FOR UNKNOWN INDICATION
     Route: 048
  8. PANTOPRAZOLE SODIUM [Concomitant]
     Indication: DRUG USE FOR UNKNOWN INDICATION
     Route: 048
  9. FOLIC ACID [Concomitant]
     Indication: DRUG USE FOR UNKNOWN INDICATION
     Route: 048
  10. HYDROCODONE BITARTRATE [Concomitant]
     Indication: PAIN
     Route: 048

REACTIONS (1)
  - HEADACHE [None]
